FAERS Safety Report 9762670 (Version 1)
Quarter: 2013Q4

REPORT INFORMATION
  Report Type: Spontaneous
  Country: US (occurrence: US)
  Receive Date: 20131216
  Receipt Date: 20131216
  Transmission Date: 20140711
  Serious: No
  Sender: FDA-Public Use
  Company Number: US-BIOGENIDEC-2013BI103513

PATIENT
  Age: 56 Year
  Sex: Male

DRUGS (2)
  1. TECFIDERA [Suspect]
     Indication: MULTIPLE SCLEROSIS
     Dates: start: 20131007, end: 20131008
  2. AVONEX [Concomitant]
     Indication: MULTIPLE SCLEROSIS
     Route: 030
     Dates: start: 20120810, end: 20131007

REACTIONS (6)
  - Somnolence [Recovered/Resolved]
  - General symptom [Recovered/Resolved]
  - Sopor [Recovered/Resolved]
  - Underdose [Unknown]
  - Face injury [Recovered/Resolved]
  - Tooth fracture [Not Recovered/Not Resolved]
